FAERS Safety Report 15750714 (Version 3)
Quarter: 2019Q1

REPORT INFORMATION
  Report Type: Spontaneous
  Country: US (occurrence: US)
  Receive Date: 20181221
  Receipt Date: 20190109
  Transmission Date: 20190417
  Serious: Yes (Life-Threatening)
  Sender: FDA-Public Use
  Company Number: US-PFIZER INC-2018520067

PATIENT
  Sex: Female

DRUGS (1)
  1. AZITHROMYCIN ANHYDROUS. [Suspect]
     Active Substance: AZITHROMYCIN ANHYDROUS
     Dosage: 250 MG, TOOK 2 ON DAY1 AND TOOK ANOTHER ONE FOR A TOTAL OF 3 TABLETS
     Dates: end: 20181210

REACTIONS (1)
  - Palpitations [Unknown]
